FAERS Safety Report 22086501 (Version 1)
Quarter: 2023Q1

REPORT INFORMATION
  Report Type: Spontaneous
  Country: FR (occurrence: FR)
  Receive Date: 20230312
  Receipt Date: 20230312
  Transmission Date: 20230418
  Serious: Yes (Death)
  Sender: FDA-Public Use
  Company Number: None

PATIENT
  Age: 71 Year
  Sex: Male
  Weight: 107 kg

DRUGS (1)
  1. AMOXICILLIN [Suspect]
     Active Substance: AMOXICILLIN
     Indication: Enterococcal infection
     Dosage: 12 G (3G 4/J)
     Route: 042
     Dates: start: 20230129, end: 20230203

REACTIONS (2)
  - Renal failure [Fatal]
  - Anuria [Fatal]

NARRATIVE: CASE EVENT DATE: 20230203
